FAERS Safety Report 9380720 (Version 4)
Quarter: 2013Q4

REPORT INFORMATION
  Report Type: Report from Study
  Country: NL (occurrence: NL)
  Receive Date: 20130702
  Receipt Date: 20131113
  Transmission Date: 20140711
  Serious: Yes (Hospitalization)
  Sender: FDA-Public Use
  Company Number: NL-JNJFOC-20130700097

PATIENT
  Age: 64 Year
  Sex: Male
  Weight: 85.1 kg

DRUGS (22)
  1. CANAGLIFLOZIN [Suspect]
     Route: 048
  2. CANAGLIFLOZIN [Suspect]
     Indication: TYPE 2 DIABETES MELLITUS
     Route: 048
     Dates: start: 20101104, end: 20130704
  3. LISINOPRIL [Concomitant]
     Indication: NEPHROPATHY
     Route: 048
     Dates: start: 20090526
  4. CRESTOR [Concomitant]
     Indication: PROPHYLAXIS
     Route: 048
     Dates: start: 20070619
  5. BISOPROLOL [Concomitant]
     Indication: CARDIOVASCULAR EVENT PROPHYLAXIS
     Route: 048
     Dates: start: 20070619
  6. SPIRIVA [Concomitant]
     Indication: ASTHMA
     Route: 045
     Dates: start: 2000
  7. SYMBICORT [Concomitant]
     Indication: ASTHMA
     Route: 055
     Dates: start: 2000
  8. KETOCONAZOLE SHAMPOO [Concomitant]
     Route: 062
     Dates: start: 20110805
  9. ASCAL [Concomitant]
     Indication: PROPHYLAXIS
     Route: 048
     Dates: start: 20070619, end: 20111201
  10. ASCAL [Concomitant]
     Indication: PROPHYLAXIS
     Route: 048
     Dates: start: 20120526
  11. ASCAL [Concomitant]
     Indication: PROPHYLAXIS
     Route: 048
     Dates: start: 20111209, end: 20120523
  12. PARACETAMOL [Concomitant]
     Route: 048
     Dates: start: 20120526, end: 20120604
  13. IBUPROFEN [Concomitant]
     Route: 048
     Dates: start: 20120604, end: 20120609
  14. DERMOVATE [Concomitant]
     Route: 061
     Dates: start: 20121207
  15. TOPICORTE [Concomitant]
     Route: 048
     Dates: start: 20121207
  16. LANTUS [Concomitant]
     Indication: DIABETES MELLITUS
     Dates: start: 20130510
  17. LANTUS [Concomitant]
     Indication: DIABETES MELLITUS
     Dates: start: 20121210, end: 20130507
  18. LANTUS [Concomitant]
     Indication: DIABETES MELLITUS
     Dates: start: 20101103, end: 20121203
  19. LANTUS [Concomitant]
     Indication: DIABETES MELLITUS
     Dates: start: 20121203, end: 20121210
  20. LANTUS [Concomitant]
     Indication: DIABETES MELLITUS
     Dates: start: 20091112
  21. LANTUS [Concomitant]
     Indication: DIABETES MELLITUS
     Dates: start: 20130507, end: 20130510
  22. METFORMIN [Concomitant]
     Indication: DIABETES MELLITUS
     Dates: start: 200803

REACTIONS (1)
  - Transitional cell carcinoma [Not Recovered/Not Resolved]
